FAERS Safety Report 4658852-6 (Version None)
Quarter: 2005Q2

REPORT INFORMATION
  Report Type: 
  Country: None (occurrence: None)
  Receive Date: 20050509
  Receipt Date: 20050426
  Transmission Date: 20051028
  Serious: Yes (Hospitalization, Other)
  Sender: FDA-Public Use
  Company Number: 2005067443

PATIENT
  Age: 71 Year
  Sex: Female

DRUGS (2)
  1. ZOLOFT [Suspect]
     Indication: MAJOR DEPRESSION
     Dosage: 50 MG (50 MG, 1 IN 1 D), ORAL
     Route: 048
     Dates: end: 20050425
  2. ALL OTHER THERAPEUTIC PRODUCTS (ALL OTHER THERAPEUTIC PRODUCTS) [Concomitant]

REACTIONS (5)
  - DISEASE RECURRENCE [None]
  - INJURY ASPHYXIATION [None]
  - MAJOR DEPRESSION [None]
  - SUICIDE ATTEMPT [None]
  - VENTRICULAR FLUTTER [None]
